FAERS Safety Report 25404810 (Version 1)
Quarter: 2025Q2

REPORT INFORMATION
  Report Type: Spontaneous
  Country: BR (occurrence: BR)
  Receive Date: 20250606
  Receipt Date: 20250606
  Transmission Date: 20250716
  Serious: No
  Sender: ALEXION PHARMACEUTICALS
  Company Number: BR-AstraZeneca-CH-00731849AP

PATIENT
  Age: 39 Year

DRUGS (1)
  1. SYMBICORT [Suspect]
     Active Substance: BUDESONIDE\FORMOTEROL FUMARATE DIHYDRATE
     Route: 065

REACTIONS (4)
  - Device use issue [Unknown]
  - Device defective [Unknown]
  - Device breakage [Unknown]
  - Wrong technique in device usage process [Unknown]
